FAERS Safety Report 9499053 (Version 2)
Quarter: 2013Q3

REPORT INFORMATION
  Report Type: Spontaneous
  Country: DK (occurrence: DK)
  Receive Date: 20130904
  Receipt Date: 20130904
  Transmission Date: 20140515
  Serious: Yes (Other)
  Sender: FDA-Public Use
  Company Number: DK-B.I. PHARMACEUTICALS,INC./RIDGEFIELD-2012-SW-00652DB

PATIENT
  Age: 71 Year
  Sex: Female

DRUGS (1)
  1. PRADAXA [Suspect]
     Indication: THROMBOSIS PROPHYLAXIS
     Dosage: 300 MG
     Route: 048
     Dates: start: 20120220, end: 20120706

REACTIONS (6)
  - Loss of consciousness [Recovered/Resolved]
  - Depressive symptom [Recovered/Resolved]
  - Depressed mood [Recovered/Resolved]
  - Indifference [Recovered/Resolved]
  - Emotional distress [Recovered/Resolved]
  - Hyperhidrosis [Recovered/Resolved]
